FAERS Safety Report 9326333 (Version 2)
Quarter: 2013Q2

REPORT INFORMATION
  Report Type: Report from Study
  Country: US (occurrence: US)
  Receive Date: 20130604
  Receipt Date: 20130611
  Transmission Date: 20140414
  Serious: Yes (Death, Life-Threatening, Hospitalization, Other)
  Sender: FDA-Public Use
  Company Number: PHEH2013US010416

PATIENT
  Age: 63 Year
  Sex: Female
  Weight: 126.8 kg

DRUGS (16)
  1. GILENYA [Suspect]
     Indication: MULTIPLE SCLEROSIS
     Dosage: 0.5 MG, QD
     Route: 048
  2. GILENYA [Suspect]
     Dosage: 0.5 MG, QD
     Route: 048
     Dates: start: 20130327
  3. FUROSEMIDE ^APS^ [Concomitant]
     Indication: HYPERTENSION
     Dosage: 20 MG, QD
     Route: 048
     Dates: start: 20121009
  4. LOTREL [Concomitant]
     Indication: HYPERTENSION
     Route: 048
     Dates: start: 2010
  5. SPIRONOLACTON [Concomitant]
     Indication: HYPERTENSION
     Dosage: 25 MG, QD
     Route: 048
     Dates: start: 2010
  6. ASA [Concomitant]
     Indication: CARDIOVASCULAR EVENT PROPHYLAXIS
     Dosage: 81 MG, QD
     Route: 048
  7. GALLAMINE [Concomitant]
  8. VITAMIN D [Concomitant]
     Indication: VITAMIN D DEFICIENCY
  9. FAMOTIDINE [Concomitant]
  10. LISINOPRIL [Concomitant]
  11. AMLODIPINE BENAZEPRIL [Concomitant]
     Indication: HYPERTENSION
     Dates: start: 201010
  12. CLOTRIMAZOLE [Concomitant]
  13. FEOSOL [Concomitant]
     Indication: ANAEMIA
     Dates: start: 20001010
  14. MULTIPLE VITAMINS [Concomitant]
     Indication: MEDICAL DIET
     Dates: start: 1991
  15. LASIX [Concomitant]
     Indication: OEDEMA PERIPHERAL
     Dates: start: 20120413
  16. METOPROLOL [Concomitant]
     Indication: HYPERTENSION
     Dosage: 12.5 MG, QD
     Dates: start: 20130324

REACTIONS (33)
  - Cardio-respiratory arrest [Fatal]
  - Respiratory arrest [Fatal]
  - Myocardial ischaemia [Unknown]
  - Electrocardiogram PR shortened [Unknown]
  - Electrocardiogram T wave abnormal [Unknown]
  - Bundle branch block right [Unknown]
  - Heart rate irregular [Unknown]
  - Pulse absent [Unknown]
  - Pulseless electrical activity [Unknown]
  - Loss of consciousness [Unknown]
  - Moaning [Unknown]
  - Lethargy [Unknown]
  - Mental status changes [Unknown]
  - Respiration abnormal [Unknown]
  - Escherichia urinary tract infection [Recovering/Resolving]
  - Accelerated hypertension [Unknown]
  - Conjunctivitis [Recovering/Resolving]
  - Haematocrit decreased [Unknown]
  - Laceration [Recovering/Resolving]
  - Confusional state [Unknown]
  - Platelet count decreased [Unknown]
  - Mobility decreased [Recovering/Resolving]
  - Fall [Recovering/Resolving]
  - Incontinence [Recovering/Resolving]
  - Metabolic acidosis [Recovering/Resolving]
  - Somnolence [Recovering/Resolving]
  - Rash erythematous [Recovering/Resolving]
  - Oedema peripheral [Recovering/Resolving]
  - Gait disturbance [Recovering/Resolving]
  - Aphasia [Recovering/Resolving]
  - Haemoglobin decreased [Unknown]
  - Aspartate aminotransferase increased [Recovering/Resolving]
  - Asthenia [Recovering/Resolving]
